FAERS Safety Report 5301830-4 (Version None)
Quarter: 2007Q2

REPORT INFORMATION
  Report Type: 
  Country: None (occurrence: None)
  Receive Date: 20070419
  Receipt Date: 20070405
  Transmission Date: 20071010
  Serious: Yes (Hospitalization)
  Sender: FDA-Public Use
  Company Number: US-AMGEN-STX218475

PATIENT
  Sex: Female

DRUGS (2)
  1. ENBREL [Suspect]
     Indication: RHEUMATOID ARTHRITIS
     Route: 058
     Dates: start: 20070102
  2. METHOTREXATE [Concomitant]
     Route: 048
     Dates: start: 20070102

REACTIONS (6)
  - BLADDER DISORDER [None]
  - DIVERTICULITIS [None]
  - DRUG INEFFECTIVE [None]
  - LOCAL SWELLING [None]
  - RHEUMATOID ARTHRITIS [None]
  - TENDERNESS [None]
